FAERS Safety Report 12486700 (Version 2)
Quarter: 2016Q3

REPORT INFORMATION
  Report Type: Spontaneous
  Country: BE (occurrence: BE)
  Receive Date: 20160621
  Receipt Date: 20160920
  Transmission Date: 20161109
  Serious: Yes (Disabling, Other)
  Sender: FDA-Public Use
  Company Number: BE-ABBVIE-15P-013-1344221-00

PATIENT
  Sex: Male

DRUGS (12)
  1. DUODOPA [Suspect]
     Active Substance: CARBIDOPA\LEVODOPA
     Dosage: DOSAGE CONTINUOUSLY MONITORED AND ADJUSTED
     Route: 050
     Dates: start: 20100205, end: 20141209
  2. DUODOPA [Suspect]
     Active Substance: CARBIDOPA\LEVODOPA
     Dosage: AM DOSE=0ML, CD=4.9ML/H FOR 16HRS, ND=4.5ML FOR 16HRS AND ED=3.3ML
     Route: 050
     Dates: start: 20141209, end: 20150916
  3. PROLOPA [Concomitant]
     Active Substance: BENSERAZIDE\LEVODOPA
     Indication: PARKINSON^S DISEASE
     Dosage: FORM STRENGTH:200MG/50MG?UNIT DOSE=0.5 TABLET
     Route: 048
  4. PROLOPA [Concomitant]
     Active Substance: BENSERAZIDE\LEVODOPA
     Indication: PRODUCT USED FOR UNKNOWN INDICATION
     Dosage: 14 TIMES PER DAY AS EMERGENCY
  5. DUODOPA [Suspect]
     Active Substance: CARBIDOPA\LEVODOPA
     Dosage: AM=0ML; CD=5ML/HR DURING 16HRS;ED=3.8ML;ND=4.7ML/HR DURING 8HRS
     Route: 050
     Dates: start: 20150916, end: 20151108
  6. DUODOPA [Suspect]
     Active Substance: CARBIDOPA\LEVODOPA
     Dosage: DOSES CONTINUOUSLY MONITORED AND ADAPTED
     Route: 050
     Dates: start: 20160106, end: 20160119
  7. DUODOPA [Suspect]
     Active Substance: CARBIDOPA\LEVODOPA
     Indication: PARKINSON^S DISEASE
     Dosage: AM DOSE=0ML. CD=4.4ML/H FOR 16HRS,ND=4.1ML/H FOR 8HRS AND ED=3ML
     Route: 050
     Dates: start: 20100202, end: 20100205
  8. DUODOPA [Suspect]
     Active Substance: CARBIDOPA\LEVODOPA
     Dosage: AM 2ML; CD 5.5ML/HR 16HRS; ED 3ML (AM), 3.5ML (PM), 2ML NIGHT; ND 5ML/HR 8 HRS
     Route: 050
     Dates: start: 20160119, end: 20160919
  9. DUODOPA [Suspect]
     Active Substance: CARBIDOPA\LEVODOPA
     Dosage: AM=0ML; CD=5.2ML/HR DURING 16HRS ; ED=3.5ML; ND=5ML/HR DURING 8HRS
     Route: 050
     Dates: start: 20151219
  10. DUODOPA [Suspect]
     Active Substance: CARBIDOPA\LEVODOPA
     Dosage: AM=0ML; CD=5.5 ML/HR  16HRS; ED= 2ML (AM, 3.5ML (PM); ND=5ML/HR 8 HRS.
     Route: 050
     Dates: start: 20160106, end: 20160106
  11. DUODOPA [Suspect]
     Active Substance: CARBIDOPA\LEVODOPA
     Dosage: AM=0ML; CD=5ML/H FOR 16HRS; ED=3.5ML; ND=4.7ML/H FOR 8HRS
     Route: 050
     Dates: start: 20151108, end: 20151219
  12. DUODOPA [Suspect]
     Active Substance: CARBIDOPA\LEVODOPA
     Dosage: AM2ML,CD5.5(AM)/5.9(PM)HR/IN 16HRS,ED0.5ML(NIGHT AND AM)/3ML(PM)ND5.2ML/HR IN 8HRS
     Route: 050
     Dates: start: 20160919

REACTIONS (11)
  - Freezing phenomenon [Unknown]
  - Somnolence [Unknown]
  - Dyskinesia [Not Recovered/Not Resolved]
  - On and off phenomenon [Unknown]
  - Stress [Unknown]
  - Upper limb fracture [Unknown]
  - Joint injury [Unknown]
  - On and off phenomenon [Recovered/Resolved]
  - Poor quality sleep [Unknown]
  - Underdose [Unknown]
  - Drug ineffective [Unknown]
